FAERS Safety Report 8260005-X (Version None)
Quarter: 2012Q1

REPORT INFORMATION
  Report Type: 
  Country: None (occurrence: None)
  Receive Date: 20120327
  Receipt Date: 20081104
  Transmission Date: 20120608
  Serious: Yes (Other)
  Sender: FDA-Public Use
  Company Number: PHEH2008US07128

PATIENT
  Age: 82 Year
  Sex: Female

DRUGS (4)
  1. GLEEVEC [Suspect]
     Indication: CHRONIC MYELOID LEUKAEMIA
     Dosage: 300 MG, QD, ORAL ; 300 MG. QD
     Route: 048
     Dates: start: 20040101, end: 20070401
  2. GLEEVEC [Suspect]
     Indication: CHRONIC MYELOID LEUKAEMIA
     Dosage: 300 MG, QD, ORAL ; 300 MG. QD
     Route: 048
     Dates: start: 20070507, end: 20080410
  3. SPRYCEL [Suspect]
  4. VERAPAMIL [Concomitant]

REACTIONS (1)
  - CHROMOSOME ANALYSIS ABNORMAL [None]
